FAERS Safety Report 20394629 (Version 2)
Quarter: 2022Q1

REPORT INFORMATION
  Report Type: Other
  Country: US (occurrence: None)
  Receive Date: 20220129
  Receipt Date: 20220324
  Transmission Date: 20220423
  Serious: Yes (Hospitalization, Other)
  Sender: FDA-Public Use
  Company Number: US-ROCHE-3011924

PATIENT
  Age: 51 Year
  Sex: Female
  Weight: 90.800 kg

DRUGS (16)
  1. OCREVUS [Suspect]
     Active Substance: OCRELIZUMAB
     Indication: Multiple sclerosis
     Dosage: (PRESCRIBED AS 300 MG ON DAY 1 AND 15 THEN 600 MG ONCE EVERY 6 MONTHS)
     Route: 065
     Dates: start: 20190708
  2. OCREVUS [Suspect]
     Active Substance: OCRELIZUMAB
     Indication: Primary progressive multiple sclerosis
     Dosage: STARTED ABOUT 4 YEARS AGO
     Route: 042
  3. AMPYRA [Concomitant]
     Active Substance: DALFAMPRIDINE
  4. WELLBUTRIN [Concomitant]
     Active Substance: BUPROPION HYDROCHLORIDE
  5. KLOR-CON [Concomitant]
     Active Substance: POTASSIUM CHLORIDE
  6. ELIQUIS [Concomitant]
     Active Substance: APIXABAN
  7. NEURONTIN [Concomitant]
     Active Substance: GABAPENTIN
  8. LEXAPRO [Concomitant]
     Active Substance: ESCITALOPRAM OXALATE
  9. BACLOFEN [Concomitant]
     Active Substance: BACLOFEN
  10. BOTOX [Concomitant]
     Active Substance: ONABOTULINUMTOXINA
  11. LASIX [Concomitant]
     Active Substance: FUROSEMIDE
  12. PFIZER-BIONTECH COVID-19 VACCINE [Concomitant]
     Active Substance: TOZINAMERAN
  13. ZOSYN [Concomitant]
     Active Substance: PIPERACILLIN SODIUM\TAZOBACTAM SODIUM
  14. ERYTHROMYCIN [Concomitant]
     Active Substance: ERYTHROMYCIN
  15. VANCOMYCIN [Concomitant]
     Active Substance: VANCOMYCIN
  16. AUGMENTIN [Concomitant]
     Active Substance: AMOXICILLIN\CLAVULANATE POTASSIUM

REACTIONS (5)
  - COVID-19 pneumonia [Recovered/Resolved]
  - Pulmonary embolism [Recovered/Resolved]
  - Pneumonia bacterial [Recovered/Resolved]
  - Multiple sclerosis relapse [Recovered/Resolved with Sequelae]
  - COVID-19 [Recovered/Resolved]

NARRATIVE: CASE EVENT DATE: 20211001
